FAERS Safety Report 5615752-2 (Version None)
Quarter: 2008Q1

REPORT INFORMATION
  Report Type: 
  Country: None (occurrence: None)
  Receive Date: 20080206
  Receipt Date: 20080111
  Transmission Date: 20080703
  Serious: Yes (Other)
  Sender: FDA-Public Use
  Company Number: PHBS2007JP20547

PATIENT
  Age: 58 Year
  Sex: Female
  Weight: 49 kg

DRUGS (11)
  1. NEORAL [Suspect]
     Indication: LIVER TRANSPLANT
     Dosage: UNK, UNK
     Route: 065
     Dates: start: 20040722
  2. NEORAL [Suspect]
     Route: 065
  3. NEORAL [Suspect]
     Route: 065
  4. NEORAL [Suspect]
     Dosage: 100 MG/DAY
     Route: 048
  5. TACROLIMUS [Suspect]
     Indication: LIVER TRANSPLANT
     Dosage: UNK, UNK
     Route: 065
     Dates: start: 20040621, end: 20040722
  6. STEROIDS NOS [Concomitant]
     Indication: LIVER TRANSPLANT
  7. INTERFERON ALFA [Concomitant]
     Indication: HEPATITIS C VIRUS
     Dosage: 60 UG, QW
     Route: 058
  8. RIBAVIRIN [Concomitant]
     Indication: HEPATITIS C VIRUS
     Dosage: 600 MG/D
     Route: 048
  9. PEGINTERFERON ALFA-2A [Concomitant]
     Indication: HEPATITIS C VIRUS
  10. MYCOPHENOLATE MOFETIL [Concomitant]
     Indication: LIVER TRANSPLANT
     Dosage: 1 G/DAY
  11. ADRENAL HORMONE PREPARATION [Concomitant]
     Indication: LIVER TRANSPLANT

REACTIONS (5)
  - CEREBELLAR ATAXIA [None]
  - COORDINATION ABNORMAL [None]
  - FALL [None]
  - HEPATITIS C [None]
  - LIVER TRANSPLANT REJECTION [None]
